FAERS Safety Report 10410472 (Version 1)
Quarter: 2014Q2

REPORT INFORMATION
  Report Type: Spontaneous
  Country: US (occurrence: None)
  Receive Date: 20140530
  Receipt Date: 20140530
  Transmission Date: 20141212
  Serious: No
  Sender: FDA-Public Use
  Company Number: 226191LEO

PATIENT
  Age: 66 Year
  Sex: Male

DRUGS (1)
  1. PICATO [Suspect]
     Indication: ACTINIC KERATOSIS
     Dates: start: 20140212, end: 20140214

REACTIONS (5)
  - Headache [None]
  - Eyelid oedema [None]
  - Application site swelling [None]
  - Eye swelling [None]
  - Drug administered at inappropriate site [None]
